FAERS Safety Report 21927116 (Version 1)
Quarter: 2023Q1

REPORT INFORMATION
  Report Type: Spontaneous
  Country: US (occurrence: US)
  Receive Date: 20230130
  Receipt Date: 20230130
  Transmission Date: 20230417
  Serious: No
  Sender: FDA-Public Use
  Company Number: US-SAREPTA THERAPEUTICS INC.-SRP2022-002422

PATIENT
  Age: 12 Year
  Sex: Male
  Weight: 42.18 kg

DRUGS (13)
  1. AMONDYS 45 [Suspect]
     Active Substance: CASIMERSEN
     Indication: Duchenne muscular dystrophy
     Dosage: 1200 MILLIGRAM, WEEKLY
     Route: 042
     Dates: start: 20210707, end: 20210901
  2. AMONDYS 45 [Suspect]
     Active Substance: CASIMERSEN
     Dosage: 1300 MILLIGRAM, WEEKLY
     Route: 042
     Dates: start: 20210901, end: 20220729
  3. AMONDYS 45 [Suspect]
     Active Substance: CASIMERSEN
     Dosage: 1200 MILLIGRAM,WEEKLY
     Route: 042
     Dates: start: 20220818
  4. SODIUM CHLORIDE [Concomitant]
     Active Substance: SODIUM CHLORIDE
     Indication: Product used for unknown indication
     Dosage: 0.9 PERCENT, 10 ML SYR 10 MLY, PRN
     Dates: start: 20210805
  5. SODIUM CHLORIDE [Concomitant]
     Active Substance: SODIUM CHLORIDE
     Dosage: 50 MILLILITER, AS DIRECTED
     Route: 042
     Dates: start: 20210831
  6. SODIUM CHLORIDE [Concomitant]
     Active Substance: SODIUM CHLORIDE
     Dosage: 0.9 PERCENT 10 ML POSIFLSH 10 ML , AS DIRECTED
     Route: 042
     Dates: start: 20220125
  7. LIDOCAINE\PRILOCAINE [Concomitant]
     Active Substance: LIDOCAINE\PRILOCAINE
     Indication: Product used for unknown indication
     Dosage: 2.5/2.5% 30 GRAM 5 GM, AS DIRECTED
     Route: 061
     Dates: start: 20210805
  8. PREDNISONE [Concomitant]
     Active Substance: PREDNISONE
     Indication: Product used for unknown indication
     Dosage: 20 MILLIGRAM, AS DIRECTED 1.5 TAB ON FRIDAY, SATURDAY, SUNDAY
     Route: 048
     Dates: start: 20180820
  9. VITAMIN D3 [Concomitant]
     Active Substance: CHOLECALCIFEROL
     Indication: Product used for unknown indication
     Dosage: 50 MICROGRAM, QD
     Route: 048
     Dates: start: 20170620
  10. EPLERENONE [Concomitant]
     Active Substance: EPLERENONE
     Indication: Product used for unknown indication
     Dosage: 25 MILLIGRAM, QD
     Route: 048
     Dates: start: 20160620
  11. CARVEDILOL [Concomitant]
     Active Substance: CARVEDILOL
     Indication: Product used for unknown indication
     Dosage: 6.25 MILLIGRAM, BID
     Route: 048
     Dates: start: 20170620
  12. LISINOPRIL [Concomitant]
     Active Substance: LISINOPRIL
     Indication: Product used for unknown indication
     Dosage: 5 MILLIGRAM
     Route: 048
     Dates: start: 20170620
  13. FAMOTIDINE [Concomitant]
     Active Substance: FAMOTIDINE
     Indication: Product used for unknown indication
     Dosage: 40 MG/ML , THREE TIMES DAILY 3.2ML ON FRIDAY, SATURDAY, SUNDAY
     Route: 048
     Dates: start: 20170620

REACTIONS (2)
  - Intentional dose omission [Unknown]
  - No adverse event [Unknown]

NARRATIVE: CASE EVENT DATE: 20220811
